FAERS Safety Report 24711315 (Version 1)
Quarter: 2024Q4

REPORT INFORMATION
  Report Type: Spontaneous
  Country: US (occurrence: None)
  Receive Date: 20241207
  Receipt Date: 20241207
  Transmission Date: 20250114
  Serious: Yes (Hospitalization)
  Sender: Public
  Company Number: None

PATIENT
  Age: 68 Year
  Sex: Female
  Weight: 59.5 kg

DRUGS (3)
  1. CYTARABINE [Suspect]
     Active Substance: CYTARABINE
     Dates: end: 20241027
  2. SPRYCEL [Suspect]
     Active Substance: DASATINIB
     Dates: end: 20241103
  3. METHOTREXATE [Suspect]
     Active Substance: METHOTREXATE
     Route: 042
     Dates: end: 20241024

REACTIONS (3)
  - Epistaxis [None]
  - Sleep disorder [None]
  - Pancytopenia [None]

NARRATIVE: CASE EVENT DATE: 20241103
